FAERS Safety Report 5632061-6 (Version None)
Quarter: 2008Q1

REPORT INFORMATION
  Report Type: 
  Country: None (occurrence: None)
  Receive Date: 20080220
  Receipt Date: 20080214
  Transmission Date: 20080703
  Serious: Yes (Other)
  Sender: FDA-Public Use
  Company Number: A0694983A

PATIENT
  Age: 30 Year
  Sex: Male

DRUGS (5)
  1. LAMICTAL [Suspect]
     Indication: BIPOLAR DISORDER
     Route: 048
     Dates: start: 20060101, end: 20070801
  2. LITHIUM CARBONATE [Concomitant]
  3. LEVOTHYROXINE SODIUM [Concomitant]
  4. UNKNOWN MEDICATION [Concomitant]
  5. ZYPREXA [Concomitant]

REACTIONS (6)
  - ABDOMINAL DISTENSION [None]
  - DEPRESSION [None]
  - FLATULENCE [None]
  - GASTROINTESTINAL DISORDER [None]
  - LACTOSE INTOLERANCE [None]
  - SUICIDAL IDEATION [None]
